FAERS Safety Report 8166400-1 (Version None)
Quarter: 2012Q1

REPORT INFORMATION
  Report Type: 
  Country: None (occurrence: None)
  Receive Date: 20120227
  Receipt Date: 20110726
  Transmission Date: 20120608
  Serious: No
  Sender: FDA-Public Use
  Company Number: US-MYLANLABS-2011S1014647

PATIENT
  Age: 23 Year
  Sex: Female

DRUGS (2)
  1. NUVARING [Concomitant]
  2. AMNESTEEM [Suspect]
     Indication: ACNE
     Route: 048
     Dates: start: 20110705

REACTIONS (6)
  - ANXIETY [None]
  - NAUSEA [None]
  - PANIC ATTACK [None]
  - HYPERHIDROSIS [None]
  - HEART RATE INCREASED [None]
  - HEADACHE [None]
